FAERS Safety Report 6270679-0 (Version None)
Quarter: 2009Q3

REPORT INFORMATION
  Report Type: 
  Country: None (occurrence: None)
  Receive Date: 20090716
  Receipt Date: 20090713
  Transmission Date: 20100115
  Serious: Yes (Death, Other)
  Sender: FDA-Public Use
  Company Number: PHHY2009MX27048

PATIENT
  Age: 83 Year
  Sex: Female

DRUGS (1)
  1. ZELMAC [Suspect]
     Indication: IRRITABLE BOWEL SYNDROME
     Dosage: 2 TABLETS (6 MG) PER DAY
     Route: 048
     Dates: start: 20080101

REACTIONS (5)
  - CARDIAC ARREST [None]
  - FALL [None]
  - FEMUR FRACTURE [None]
  - MYOCARDIAL INFARCTION [None]
  - SURGERY [None]
